FAERS Safety Report 21188146 (Version 1)
Quarter: 2022Q3

REPORT INFORMATION
  Report Type: Spontaneous
  Country: US (occurrence: US)
  Receive Date: 20220809
  Receipt Date: 20220809
  Transmission Date: 20221027
  Serious: Yes (Other)
  Sender: FDA-Public Use
  Company Number: US-drreddys-LIT/USA/22/0153060

PATIENT
  Sex: Male

DRUGS (6)
  1. LENALIDOMIDE [Interacting]
     Active Substance: LENALIDOMIDE
     Indication: Central nervous system neoplasm
  2. LENALIDOMIDE [Interacting]
     Active Substance: LENALIDOMIDE
     Indication: Peripheral nervous system neoplasm
  3. LENALIDOMIDE [Interacting]
     Active Substance: LENALIDOMIDE
     Indication: Neoplasm recurrence
  4. TRAMETINIB [Interacting]
     Active Substance: TRAMETINIB
     Indication: Central nervous system neoplasm
  5. TRAMETINIB [Interacting]
     Active Substance: TRAMETINIB
     Indication: Peripheral nervous system neoplasm
  6. TRAMETINIB [Interacting]
     Active Substance: TRAMETINIB
     Indication: Neoplasm recurrence

REACTIONS (3)
  - Drug interaction [Unknown]
  - Ischaemic cerebral infarction [Unknown]
  - Blindness [Unknown]
